FAERS Safety Report 7180277 (Version 2)
Quarter: 2014Q1

REPORT INFORMATION
  Report Type: Spontaneous
  Country: US (occurrence: None)
  Receive Date: 20091104
  Receipt Date: 20140221
  Transmission Date: 20141002
  Serious: Yes (Other)
  Sender: FDA-Public Use
  Company Number: 2009S1006521

PATIENT
  Age: 53 Year
  Sex: Female
  Weight: 97.52 kg

DRUGS (4)
  1. FLEET PHOSPHO-SODA [Suspect]
     Indication: COLONOSCOPY
     Dosage: 90 ML, 2 IN 24 HOURS, ORAL
     Route: 048
     Dates: start: 20061025, end: 20061025
  2. LOTREL (BENAZEPRIL HYDORCHLORIDE, AMLODIPINE BESILATE) [Concomitant]
  3. HYDROCHLOROTHIAZIDE (HYDROCHLOROTHIAZIDE) [Concomitant]
  4. ZOCOR (SIMVASTATIN) [Concomitant]

REACTIONS (13)
  - Nausea [None]
  - Vomiting [None]
  - Diarrhoea [None]
  - Renal failure acute [None]
  - Diverticulum [None]
  - Renal failure chronic [None]
  - Bladder mass [None]
  - Tubulointerstitial nephritis [None]
  - Nephrocalcinosis [None]
  - Oral discomfort [None]
  - Feeling abnormal [None]
  - Nephrogenic anaemia [None]
  - Acute phosphate nephropathy [None]
